FAERS Safety Report 23781299 (Version 1)
Quarter: 2024Q2

REPORT INFORMATION
  Report Type: Spontaneous
  Country: CN (occurrence: None)
  Receive Date: 20240425
  Receipt Date: 20240425
  Transmission Date: 20240716
  Serious: Yes (Hospitalization)
  Sender: FDA-Public Use
  Company Number: CN-ROCHE-3550428

PATIENT
  Age: 58 Year
  Sex: Male
  Weight: 57 kg

DRUGS (6)
  1. MABTHERA [Suspect]
     Active Substance: RITUXIMAB
     Indication: Diffuse large B-cell lymphoma stage III
     Dosage: DAY0
     Route: 041
     Dates: start: 20240110
  2. MABTHERA [Suspect]
     Active Substance: RITUXIMAB
     Dosage: DAY0
     Route: 041
     Dates: start: 20240110
  3. CYCLOPHOSPHAMIDE [Suspect]
     Active Substance: CYCLOPHOSPHAMIDE
     Indication: Diffuse large B-cell lymphoma stage III
     Dosage: DAY1
     Route: 041
     Dates: start: 20240111
  4. PIRARUBICIN HYDROCHLORIDE [Suspect]
     Active Substance: PIRARUBICIN HYDROCHLORIDE
     Indication: Diffuse large B-cell lymphoma stage III
     Dosage: DAY1
     Route: 041
     Dates: start: 20240111
  5. VINORELBINE TARTRATE [Suspect]
     Active Substance: VINORELBINE TARTRATE
     Indication: Diffuse large B-cell lymphoma stage III
     Dosage: DAY1
     Route: 041
     Dates: start: 20240111
  6. DEXAMETHASONE [Concomitant]
     Active Substance: DEXAMETHASONE
     Indication: Diffuse large B-cell lymphoma stage III
     Dosage: DAY1 - DAY5
     Dates: start: 20240111

REACTIONS (4)
  - Myelosuppression [Recovering/Resolving]
  - Pyrexia [Unknown]
  - Cough [Unknown]
  - Sputum discoloured [Unknown]

NARRATIVE: CASE EVENT DATE: 20240117
